FAERS Safety Report 15456185 (Version 11)
Quarter: 2020Q4

REPORT INFORMATION
  Report Type: Spontaneous
  Country: US (occurrence: US)
  Receive Date: 20181002
  Receipt Date: 20201207
  Transmission Date: 20210113
  Serious: Yes (Other)
  Sender: FDA-Public Use
  Company Number: US-SA-2017SA035843

PATIENT

DRUGS (5)
  1. ALDURAZYME [Suspect]
     Active Substance: LARONIDASE
     Dosage: 23.2 MG, QW
     Route: 042
  2. BENADRYL [Concomitant]
     Active Substance: DIPHENHYDRAMINE HYDROCHLORIDE
     Indication: PREMEDICATION
     Dosage: UNK
     Route: 065
  3. ALDURAZYME [Suspect]
     Active Substance: LARONIDASE
     Dosage: 0.61 MG/KG, QW
     Route: 041
  4. ALDURAZYME [Suspect]
     Active Substance: LARONIDASE
     Indication: MUCOPOLYSACCHARIDOSIS I
     Dosage: 0.61 MG/KG, QW
     Route: 041
     Dates: start: 20161014
  5. BENADRYL [Concomitant]
     Active Substance: DIPHENHYDRAMINE HYDROCHLORIDE
     Dosage: 50 MG,UNK
     Route: 065

REACTIONS (10)
  - Exposure during pregnancy [Unknown]
  - Weight decreased [Unknown]
  - Weight increased [Unknown]
  - Pyrexia [Unknown]
  - Illness [Unknown]
  - Intervertebral disc operation [Unknown]
  - Malaise [Unknown]
  - Therapy interrupted [Unknown]
  - Exposure via breast milk [Unknown]
  - Chills [Unknown]

NARRATIVE: CASE EVENT DATE: 20171023
